FAERS Safety Report 6647146-5 (Version None)
Quarter: 2010Q1

REPORT INFORMATION
  Report Type: 
  Country: None (occurrence: None)
  Receive Date: 20100323
  Receipt Date: 20100312
  Transmission Date: 20100710
  Serious: Yes (Other)
  Sender: FDA-Public Use
  Company Number: PHHY2010CN15526

PATIENT
  Age: 27 Year
  Sex: Female

DRUGS (3)
  1. VOLTAREN [Suspect]
     Indication: ANKYLOSING SPONDYLITIS
     Dosage: 50 MG, TID
     Route: 048
     Dates: start: 20100108, end: 20100311
  2. SULFASALAZINE [Concomitant]
     Dosage: UNK
     Dates: start: 20090101
  3. TRIPTERYGIUM [Concomitant]
     Dosage: UNK
     Dates: start: 20090101

REACTIONS (1)
  - AMENORRHOEA [None]
